FAERS Safety Report 7920031-4 (Version None)
Quarter: 2011Q4

REPORT INFORMATION
  Report Type: 
  Country: None (occurrence: None)
  Receive Date: 20111117
  Receipt Date: 20111111
  Transmission Date: 20120403
  Serious: Yes (Other)
  Sender: FDA-Public Use
  Company Number: DE-BRISTOL-MYERS SQUIBB COMPANY-16160913

PATIENT
  Age: 63 Year
  Sex: Female

DRUGS (2)
  1. TAXOL [Suspect]
     Indication: BREAST CANCER
     Route: 065
     Dates: start: 20110601
  2. HERCEPTIN [Suspect]
     Indication: CHEMOTHERAPY
     Route: 065
     Dates: start: 20110601

REACTIONS (1)
  - PSORIASIS [None]
